FAERS Safety Report 9337379 (Version 4)
Quarter: 2013Q3

REPORT INFORMATION
  Report Type: Report from Study
  Country: US (occurrence: US)
  Receive Date: 20130607
  Receipt Date: 20130911
  Transmission Date: 20140515
  Serious: Yes (Death, Hospitalization)
  Sender: FDA-Public Use
  Company Number: US-ACTELION-A-US2013-83964

PATIENT
  Age: 56 Year
  Sex: Female

DRUGS (4)
  1. VELETRI [Suspect]
     Indication: PULMONARY ARTERIAL HYPERTENSION
     Dosage: 19 NG/KG, PER MIN
     Route: 042
     Dates: start: 20111017
  2. COUMADIN [Concomitant]
  3. SILDENAFIL [Concomitant]
     Indication: PULMONARY ARTERIAL HYPERTENSION
  4. VANCOMYCIN [Concomitant]
     Dosage: 1 GM WITH EACH DIALYSIS
     Dates: start: 20130519, end: 20130603

REACTIONS (6)
  - Cardio-respiratory arrest [Fatal]
  - Sepsis [Recovered/Resolved]
  - Device related infection [Recovered/Resolved]
  - Catheter placement [Recovered/Resolved]
  - Fall [Not Recovered/Not Resolved]
  - Blood culture positive [Recovered/Resolved]
